FAERS Safety Report 23931417 (Version 1)
Quarter: 2024Q2

REPORT INFORMATION
  Report Type: Report from Study
  Country: US (occurrence: US)
  Receive Date: 20240603
  Receipt Date: 20240603
  Transmission Date: 20240716
  Serious: Yes (Other)
  Sender: FDA-Public Use
  Company Number: US-ABBVIE-5784096

PATIENT
  Age: 59 Year
  Sex: Female

DRUGS (1)
  1. QULIPTA [Suspect]
     Active Substance: ATOGEPANT
     Indication: Product used for unknown indication
     Dosage: FORM STRENGTH: 60 MG
     Route: 048

REACTIONS (8)
  - Brain injury [Unknown]
  - Fall [Unknown]
  - Balance disorder [Not Recovered/Not Resolved]
  - Spinal cord injury [Unknown]
  - Migraine [Not Recovered/Not Resolved]
  - Vascular occlusion [Not Recovered/Not Resolved]
  - Injury [Unknown]
  - Joint dislocation [Unknown]

NARRATIVE: CASE EVENT DATE: 20210509
